FAERS Safety Report 9456177 (Version 1)
Quarter: 2013Q3

REPORT INFORMATION
  Report Type: Spontaneous
  Country: GB (occurrence: GB)
  Receive Date: 20130813
  Receipt Date: 20130813
  Transmission Date: 20140515
  Serious: Yes (Death, Hospitalization, Other)
  Sender: FDA-Public Use
  Company Number: GB-BAXTER-2013BAX030210

PATIENT
  Age: 84 Year
  Sex: Male

DRUGS (3)
  1. EXTRANEAL (ICODEXTRIN 7.5%) SOLUTION FOR PERITONEAL DIALYSIS [Suspect]
     Indication: RENAL FAILURE CHRONIC
     Route: 033
     Dates: start: 201206, end: 20130725
  2. PHYSIONEAL 40 GLUCOSE 1.36% W/V / 13.6 MG/ML, SOLUTION FOR PERITONEAL [Suspect]
     Indication: RENAL FAILURE CHRONIC
     Route: 033
     Dates: start: 201206, end: 20130725
  3. NUTRINEAL PD4 1.1% AMINO ACIDS CLEAR-FLEX, SOLUTION FOR PERITONEAL DIA [Suspect]
     Indication: RENAL FAILURE CHRONIC
     Route: 033
     Dates: start: 201206, end: 20130725

REACTIONS (3)
  - Cardiac disorder [Fatal]
  - Cerebrovascular accident [Unknown]
  - General physical health deterioration [Unknown]
